FAERS Safety Report 4308279-1 (Version None)
Quarter: 2004Q1

REPORT INFORMATION
  Report Type: 
  Country: None (occurrence: None)
  Receive Date: 20040301
  Receipt Date: 20031014
  Transmission Date: 20041129
  Serious: No
  Sender: FDA-Public Use
  Company Number: US-BRISTOL-MYERS SQUIBB COMPANY-12419263

PATIENT
  Age: 85 Year
  Sex: Male
  Weight: 71 kg

DRUGS (1)
  1. METFORMIN HCL [Suspect]
     Dosage: DURATION OF THERAPY:  ^2-3 YEARS^
     Dates: end: 20031008

REACTIONS (1)
  - DRUG INEFFECTIVE [None]
